FAERS Safety Report 12114532 (Version 8)
Quarter: 2018Q4

REPORT INFORMATION
  Report Type: Report from Study
  Country: JP (occurrence: JP)
  Receive Date: 20160225
  Receipt Date: 20181210
  Transmission Date: 20190204
  Serious: Yes (Other)
  Sender: FDA-Public Use
  Company Number: JP-VIIV HEALTHCARE LIMITED-JP2015JPN133884

PATIENT
  Age: 5 Decade
  Sex: Male

DRUGS (14)
  1. DOXIL [Concomitant]
     Active Substance: DOXORUBICIN HYDROCHLORIDE
     Dosage: 33 MG, QD
     Dates: start: 20140825, end: 20140825
  2. ONDANSETRON HYDROCHLORIDE HYDRATE [Concomitant]
     Dosage: 4 MG, QD
     Dates: start: 20140917, end: 20140917
  3. DOLUTEGRAVIR [Suspect]
     Active Substance: DOLUTEGRAVIR
     Indication: HIV INFECTION
     Dosage: 50 MG, 1D
     Route: 048
     Dates: start: 20140828
  4. TRUVADA [Concomitant]
     Active Substance: EMTRICITABINE\TENOFOVIR DISOPROXIL FUMARATE
     Indication: HIV INFECTION
     Dosage: 1 DF, UNK
     Route: 048
     Dates: start: 20140828, end: 20170209
  5. SAMTIREL [Concomitant]
     Active Substance: ATOVAQUONE
     Indication: ANTIFUNGAL PROPHYLAXIS
     Dosage: 1500 MG, QD
     Route: 048
     Dates: start: 20140818, end: 20140916
  6. DAIPHEN [Suspect]
     Active Substance: SULFAMETHOXAZOLE\TRIMETHOPRIM
     Indication: ANTIFUNGAL PROPHYLAXIS
     Dosage: 1 DF, QD
     Route: 048
     Dates: start: 20140917, end: 20160628
  7. ONDANSETRON HYDROCHLORIDE HYDRATE [Concomitant]
     Indication: PROPHYLAXIS
     Dosage: 4 MG, QD
     Dates: start: 20140804, end: 20140804
  8. DAIPHEN [Suspect]
     Active Substance: SULFAMETHOXAZOLE\TRIMETHOPRIM
     Indication: PNEUMOCYSTIS JIROVECII PNEUMONIA
     Dosage: 1 DF, QD
     Route: 048
     Dates: start: 20140728, end: 20140801
  9. DESCOVY [Concomitant]
     Active Substance: EMTRICITABINE\TENOFOVIR ALAFENAMIDE FUMARATE
     Indication: HIV INFECTION
     Dosage: 1 DF, 1D
     Dates: start: 20170210
  10. ONDANSETRON HYDROCHLORIDE HYDRATE [Concomitant]
     Dosage: 4 MG, QD
     Dates: start: 20140825, end: 20140825
  11. DOXIL [Concomitant]
     Active Substance: DOXORUBICIN HYDROCHLORIDE
     Indication: KAPOSI^S SARCOMA
     Dosage: 32 MG, QD
     Dates: start: 20140804, end: 20140804
  12. SAMTIREL [Concomitant]
     Active Substance: ATOVAQUONE
     Indication: PNEUMOCYSTIS JIROVECII PNEUMONIA
     Dosage: 1500 MG, QD
     Route: 048
     Dates: start: 20140802, end: 20140817
  13. DOXIL [Concomitant]
     Active Substance: DOXORUBICIN HYDROCHLORIDE
     Dosage: 33 MG, QD
     Dates: start: 20140917, end: 20140917
  14. BAKTAR [Concomitant]
     Active Substance: SULFAMETHOXAZOLE\TRIMETHOPRIM
     Indication: ANTIFUNGAL PROPHYLAXIS
     Dosage: 1 DF, QD
     Dates: start: 20170210, end: 20170810

REACTIONS (5)
  - Folliculitis [Recovering/Resolving]
  - Haemoptysis [Recovering/Resolving]
  - Hepatic function abnormal [Recovered/Resolved]
  - Hepatic function abnormal [Recovered/Resolved]
  - Anogenital warts [Recovering/Resolving]

NARRATIVE: CASE EVENT DATE: 20140901
